FAERS Safety Report 6390726-5 (Version None)
Quarter: 2009Q4

REPORT INFORMATION
  Report Type: 
  Country: None (occurrence: None)
  Receive Date: 20091006
  Receipt Date: 20090923
  Transmission Date: 20100525
  Serious: Yes (Hospitalization, Other)
  Sender: FDA-Public Use
  Company Number: PHEH2009US11074

PATIENT
  Sex: Female
  Weight: 112.93 kg

DRUGS (1)
  1. RECLAST [Suspect]
     Dosage: UNK
     Route: 042
     Dates: start: 20090828, end: 20090828

REACTIONS (13)
  - ABASIA [None]
  - ARTHRALGIA [None]
  - BLOOD SODIUM DECREASED [None]
  - INAPPROPRIATE ANTIDIURETIC HORMONE SECRETION [None]
  - INFECTION [None]
  - MENTAL STATUS CHANGES [None]
  - MUSCULAR WEAKNESS [None]
  - NAUSEA [None]
  - OEDEMA PERIPHERAL [None]
  - POLYDIPSIA [None]
  - PYREXIA [None]
  - TENDERNESS [None]
  - VOMITING [None]
